FAERS Safety Report 9307995 (Version 2)
Quarter: 2013Q2

REPORT INFORMATION
  Report Type: Report from Study
  Country: US (occurrence: US)
  Receive Date: 20130524
  Receipt Date: 20130524
  Transmission Date: 20140414
  Serious: Yes (Hospitalization)
  Sender: FDA-Public Use
  Company Number: US-JNJFOC-20130512260

PATIENT
  Sex: Male

DRUGS (1)
  1. REMICADE [Suspect]
     Indication: CROHN^S DISEASE
     Route: 042
     Dates: start: 2001

REACTIONS (4)
  - Infection [Unknown]
  - Pyrexia [Unknown]
  - Ulcer [Unknown]
  - Presyncope [Unknown]
